FAERS Safety Report 23458257 (Version 1)
Quarter: 2024Q1

REPORT INFORMATION
  Report Type: Spontaneous
  Country: US (occurrence: US)
  Receive Date: 20240130
  Receipt Date: 20240130
  Transmission Date: 20240409
  Serious: No
  Sender: FDA-Public Use
  Company Number: US-SUNOVION-2024SUN000066

PATIENT

DRUGS (3)
  1. APTIOM [Suspect]
     Active Substance: ESLICARBAZEPINE ACETATE
     Indication: Seizure
     Dosage: 1200 MG
     Route: 048
  2. APTIOM [Suspect]
     Active Substance: ESLICARBAZEPINE ACETATE
     Dosage: 1800 MG
     Route: 048
  3. APTIOM [Suspect]
     Active Substance: ESLICARBAZEPINE ACETATE
     Dosage: 1200 MG, HS (TWO 600MG TABLETS OF APTIOM AT NIGHT AT THE SAME TIME)
     Route: 048

REACTIONS (3)
  - Illness [Not Recovered/Not Resolved]
  - Chemotherapy [Not Recovered/Not Resolved]
  - Prescribed overdose [Unknown]
